FAERS Safety Report 9111481 (Version 1)
Quarter: 2013Q1

REPORT INFORMATION
  Report Type: Spontaneous
  Country: US (occurrence: US)
  Receive Date: 20130219
  Receipt Date: 20130219
  Transmission Date: 20140127
  Serious: Yes (Other)
  Sender: FDA-Public Use
  Company Number: US-BRISTOL-MYERS SQUIBB COMPANY-16569691

PATIENT
  Age: 54 Year
  Sex: Female

DRUGS (6)
  1. ORENCIA [Suspect]
     Indication: RHEUMATOID ARTHRITIS
     Dosage: FOR THREE MONTHS;INTERRUPTED +RESTARTED END OF JAN12 FOR THREE MONTHS AGAIN INTERR
     Route: 042
     Dates: start: 201106
  2. PREDNISONE [Concomitant]
  3. PRILOSEC [Concomitant]
  4. FOSAMAX [Concomitant]
  5. LASILIX [Concomitant]
  6. IBUPROFEN [Concomitant]

REACTIONS (2)
  - Localised infection [Unknown]
  - Wound infection [Unknown]
